FAERS Safety Report 5490183-7 (Version None)
Quarter: 2007Q4

REPORT INFORMATION
  Report Type: 
  Country: None (occurrence: None)
  Receive Date: 20071017
  Receipt Date: 20071009
  Transmission Date: 20080405
  Serious: Yes (Other)
  Sender: FDA-Public Use
  Company Number: SP01561

PATIENT
  Age: 48 Year
  Sex: Female
  Weight: 72.5755 kg

DRUGS (8)
  1. OSMOPREP [Suspect]
     Indication: COLONOSCOPY
     Dosage: 48 GM, ORAL
     Route: 048
     Dates: start: 20070807, end: 20070807
  2. VASOTEC [Concomitant]
  3. INSULIN [Concomitant]
  4. HYDROCHLOROTHIAZIDE [Concomitant]
  5. VALIUM [Concomitant]
  6. LORATADINE [Concomitant]
  7. ASPIRIN [Concomitant]
  8. LAXATIVE [Concomitant]

REACTIONS (3)
  - HEADACHE [None]
  - RENAL FAILURE ACUTE [None]
  - SEDATION [None]
